FAERS Safety Report 4524096-1 (Version None)
Quarter: 2004Q4

REPORT INFORMATION
  Report Type: 
  Country: None (occurrence: None)
  Receive Date: 20041119
  Receipt Date: 20040803
  Transmission Date: 20050328
  Serious: No
  Sender: FDA-Public Use
  Company Number: PHEH2004US08405

PATIENT
  Age: 35 Year
  Sex: Female

DRUGS (4)
  1. ZELNORM [Suspect]
     Indication: IRRITABLE BOWEL SYNDROME
     Dosage: 6 MG, BID, ORAL
     Route: 048
     Dates: start: 20040714
  2. MOTRIN [Concomitant]
  3. VITAMIN B COMPLEX CAP [Concomitant]
  4. CALCIUM GLUCONATE [Concomitant]

REACTIONS (1)
  - WEIGHT INCREASED [None]
